FAERS Safety Report 5542446-4 (Version None)
Quarter: 2007Q4

REPORT INFORMATION
  Report Type: 
  Country: None (occurrence: None)
  Receive Date: 20071210
  Receipt Date: 20071126
  Transmission Date: 20080405
  Serious: Yes (Other)
  Sender: FDA-Public Use
  Company Number: NL-NOVOPROD-269862

PATIENT
  Sex: Female

DRUGS (1)
  1. ACTIVELLE [Suspect]
     Indication: HORMONE THERAPY
     Dosage: 1 TAB, QD

REACTIONS (1)
  - DEEP VEIN THROMBOSIS [None]
